FAERS Safety Report 6273190-6 (Version None)
Quarter: 2009Q3

REPORT INFORMATION
  Report Type: 
  Country: None (occurrence: None)
  Receive Date: 20090715
  Receipt Date: 20090709
  Transmission Date: 20100115
  Serious: Yes (Hospitalization)
  Sender: FDA-Public Use
  Company Number: WAES 0907USA00306

PATIENT
  Age: 73 Year
  Sex: Male

DRUGS (3)
  1. CAP VORINOSTAT [Suspect]
     Indication: MULTIPLE MYELOMA
     Dosage: 400 MG PO
     Route: 048
     Dates: start: 20090526
  2. INFUSION (FORM) BORTEZOMIB [Suspect]
     Indication: MULTIPLE MYELOMA
     Dosage: 2.11 MG IV 2.17 MG IV
     Route: 042
     Dates: start: 20090526, end: 20090605
  3. INFUSION (FORM) BORTEZOMIB [Suspect]
     Indication: MULTIPLE MYELOMA
     Dosage: 2.11 MG IV 2.17 MG IV
     Route: 042
     Dates: start: 20090616, end: 20090626

REACTIONS (2)
  - RENAL FAILURE [None]
  - SYNCOPE [None]
